FAERS Safety Report 21315061 (Version 1)
Quarter: 2022Q3

REPORT INFORMATION
  Report Type: Spontaneous
  Country: CN (occurrence: CN)
  Receive Date: 20220909
  Receipt Date: 20220909
  Transmission Date: 20221027
  Serious: Yes (Disabling)
  Sender: FDA-Public Use
  Company Number: CN-PFIZER INC-PV202200059370

PATIENT
  Age: 51 Year
  Sex: Female
  Weight: 68 kg

DRUGS (5)
  1. CYTARABINE [Suspect]
     Active Substance: CYTARABINE
     Indication: Acute myeloid leukaemia
     Dosage: 1000 MG, 1X/DAY
     Route: 041
     Dates: start: 20220820, end: 20220820
  2. CYTARABINE [Suspect]
     Active Substance: CYTARABINE
     Dosage: 500 MG, 1X/DAY
     Route: 041
     Dates: start: 20220821, end: 20220822
  3. CLADRIBINE [Suspect]
     Active Substance: CLADRIBINE
     Indication: Acute myeloid leukaemia
     Dosage: 10 MG, 1X/DAY
     Route: 041
     Dates: start: 20220820, end: 20220820
  4. CLADRIBINE [Suspect]
     Active Substance: CLADRIBINE
     Dosage: 5 ML, 1X/DAY
     Route: 041
     Dates: start: 20220821, end: 20220822
  5. SODIUM CHLORIDE [Concomitant]
     Active Substance: SODIUM CHLORIDE
     Indication: Vehicle solution use
     Dosage: 500 ML, 1X/DAY
     Route: 041
     Dates: start: 20220820, end: 20220822

REACTIONS (1)
  - Hepatic enzyme increased [Recovered/Resolved]

NARRATIVE: CASE EVENT DATE: 20220822
